FAERS Safety Report 12240004 (Version 2)
Quarter: 2017Q1

REPORT INFORMATION
  Report Type: Spontaneous
  Country: US (occurrence: US)
  Receive Date: 20160405
  Receipt Date: 20170316
  Transmission Date: 20170428
  Serious: No
  Sender: FDA-Public Use
  Company Number: US-ROCHE-1663177

PATIENT
  Age: 57 Year
  Sex: Female
  Weight: 71.28 kg

DRUGS (1)
  1. ERIVEDGE [Suspect]
     Active Substance: VISMODEGIB
     Indication: BASAL CELL NAEVUS SYNDROME
     Route: 048
     Dates: start: 20130226, end: 20160317

REACTIONS (2)
  - Abdominal discomfort [Unknown]
  - Diarrhoea [Unknown]

NARRATIVE: CASE EVENT DATE: 201509
